FAERS Safety Report 9274840 (Version 1)
Quarter: 2013Q2

REPORT INFORMATION
  Report Type: Spontaneous
  Country: US (occurrence: US)
  Receive Date: 20130507
  Receipt Date: 20130507
  Transmission Date: 20140414
  Serious: Yes (Hospitalization)
  Sender: FDA-Public Use
  Company Number: US-JNJFOC-20130502322

PATIENT
  Sex: Female

DRUGS (6)
  1. TOPOMAX [Suspect]
     Indication: MIGRAINE
     Route: 048
  2. TYLENOL 3 [Suspect]
     Indication: PAIN
     Route: 048
  3. EFFEXOR [Suspect]
     Indication: PRODUCT USED FOR UNKNOWN INDICATION
     Route: 065
  4. PROMETHAZINE HYDROCHLORIDE [Suspect]
     Indication: VOMITING
     Route: 048
  5. PROMETHAZINE HYDROCHLORIDE [Suspect]
     Indication: NAUSEA
     Route: 048
  6. PROMETHAZINE HYDROCHLORIDE [Suspect]
     Indication: NAUSEA
     Route: 065

REACTIONS (2)
  - Exposure during pregnancy [Recovered/Resolved]
  - Placenta praevia [Recovered/Resolved]
